FAERS Safety Report 9122813 (Version 1)
Quarter: 2013Q1

REPORT INFORMATION
  Report Type: Spontaneous
  Country: US (occurrence: None)
  Receive Date: 20130130
  Receipt Date: 20130130
  Transmission Date: 20140127
  Serious: Yes (Other)
  Sender: FDA-Public Use
  Company Number: 2013AL000007

PATIENT
  Age: 76 Year
  Sex: Female
  Weight: 58.1 kg

DRUGS (20)
  1. FOLOTYN [Suspect]
     Indication: PERIPHERAL T-CELL LYMPHOMA UNSPECIFIED
     Route: 042
     Dates: start: 20121218, end: 20121226
  2. CYTOXAN [Suspect]
     Indication: PERIPHERAL T-CELL LYMPHOMA UNSPECIFIED
     Route: 042
     Dates: start: 20121204, end: 20121204
  3. ETOPOSIDE (ETOPOSIDE) [Suspect]
     Indication: PERIPHERAL T-CELL LYMPHOMA UNSPECIFIED
     Route: 042
     Dates: start: 20121204, end: 20121206
  4. VINCRISTINE [Suspect]
     Indication: PERIPHERAL T-CELL LYMPHOMA UNSPECIFIED
     Route: 042
     Dates: start: 20121204, end: 20121204
  5. PREDNISONE (PREDNISONE) [Suspect]
     Indication: PERIPHERAL T-CELL LYMPHOMA UNSPECIFIED
  6. ACETAMINOPHEN [Concomitant]
  7. CALCIUM CARBONATE [Concomitant]
  8. CHOLECALCIFEROL [Concomitant]
  9. CLINDAMYCIN [Concomitant]
  10. CLOBETASOL [Concomitant]
  11. FOLIC ACID [Concomitant]
  12. VITAMIN B6 [Concomitant]
  13. HYDROXYZINE [Concomitant]
  14. LOSARTAN [Concomitant]
  15. MOMETASONE [Concomitant]
  16. MULTIVITAMIN [Concomitant]
  17. MAGIC MOUTHWASH [Concomitant]
  18. ONDANSETRON [Concomitant]
  19. RANITIDINE [Concomitant]
  20. PREDNISONE [Concomitant]

REACTIONS (3)
  - Pulmonary embolism [None]
  - Cellulitis [None]
  - Decreased activity [None]
